FAERS Safety Report 5960252-3 (Version None)
Quarter: 2008Q4

REPORT INFORMATION
  Report Type: 
  Country: None (occurrence: None)
  Receive Date: 20081118
  Receipt Date: 20081118
  Transmission Date: 20090506
  Serious: Yes (Other)
  Sender: FDA-Public Use
  Company Number: None

PATIENT
  Age: 24 Year
  Sex: Female

DRUGS (1)
  1. TRAZODONE HCL [Suspect]
     Indication: INSOMNIA
     Dosage: 50MG 1 TABLET AT BEDTIM PO
     Route: 048
     Dates: start: 20081115, end: 20081116

REACTIONS (7)
  - ANGIOEDEMA [None]
  - ANXIETY [None]
  - NAUSEA [None]
  - PRURITUS [None]
  - RASH [None]
  - TACHYCARDIA [None]
  - VOMITING [None]
